FAERS Safety Report 8508952-5 (Version None)
Quarter: 2012Q3

REPORT INFORMATION
  Report Type: 
  Country: None (occurrence: None)
  Receive Date: 20120713
  Receipt Date: 20120711
  Transmission Date: 20120928
  Serious: Yes (Disabling, Other)
  Sender: FDA-Public Use
  Company Number: US-PFIZER INC-2012155024

PATIENT
  Sex: Male
  Weight: 109 kg

DRUGS (4)
  1. RANIBIZUMAB [Suspect]
     Indication: MACULAR DEGENERATION
     Dosage: UNK
     Dates: start: 20070801, end: 20080901
  2. LIPITOR [Suspect]
     Indication: VASCULAR GRAFT
     Dosage: 20 MG, DAILY
     Route: 048
     Dates: start: 19990101
  3. RANIBIZUMAB [Suspect]
     Indication: EYE HAEMORRHAGE
  4. HYDROCHLOROTHIAZIDE/IRBESARTAN HYDROCHLORIDE [Concomitant]
     Indication: HYPERTENSION
     Dosage: 6.5 MG, 3X/WEEK

REACTIONS (7)
  - READING DISORDER [None]
  - BLINDNESS [None]
  - MACULAR DEGENERATION [None]
  - EYE DISORDER [None]
  - IMPAIRED DRIVING ABILITY [None]
  - EYE HAEMORRHAGE [None]
  - HYPOACUSIS [None]
